FAERS Safety Report 22371633 (Version 1)
Quarter: 2023Q2

REPORT INFORMATION
  Report Type: Other
  Country: MX (occurrence: None)
  Receive Date: 20230526
  Receipt Date: 20230526
  Transmission Date: 20230722
  Serious: Yes (Disabling, Other)
  Sender: FDA-Public Use
  Company Number: MX-ROCHE-3355320

PATIENT
  Sex: Female

DRUGS (5)
  1. OCREVUS [Suspect]
     Active Substance: OCRELIZUMAB
     Indication: Relapsing-remitting multiple sclerosis
     Dosage: OCRELIZUMAB VIAL 300MG/10ML (30MG/ML)
     Route: 042
     Dates: start: 20200801
  2. DIPHENHYDRAMINE [Concomitant]
     Active Substance: DIPHENHYDRAMINE
     Dosage: UNIQUE DOSE, 30 MINUTES BEFORE OCRELIZUMAB
     Route: 042
  3. HYDROCORTISONE [Concomitant]
     Active Substance: HYDROCORTISONE
     Dosage: UNIQUE DOSE, 30 MINUTES BEFORE OCRELIZUMAB
     Route: 042
  4. DEXAMETHASONE [Concomitant]
     Active Substance: DEXAMETHASONE
     Dosage: UNIQUE DOSE, 30 MINUTES BEFORE OCRELIZUMAB
     Route: 042
  5. ACETAMINOPHEN [Concomitant]
     Active Substance: ACETAMINOPHEN
     Dosage: UNIQUE DOSE, 30 MINUTES BEFORE OCRELIZUMAB
     Route: 048

REACTIONS (12)
  - Depression [Unknown]
  - Stress [Unknown]
  - Muscular weakness [Unknown]
  - Rapid eye movements sleep abnormal [Unknown]
  - Hypoaesthesia [Unknown]
  - Expanded disability status scale score increased [Unknown]
  - Multiple sclerosis [Unknown]
  - Multiple sclerosis [Unknown]
  - Demyelination [Unknown]
  - Sensory disturbance [Unknown]
  - Pyramidal tract syndrome [Unknown]
  - Spinal cord injury thoracic [Unknown]
